FAERS Safety Report 4964675-0 (Version None)
Quarter: 2006Q2

REPORT INFORMATION
  Report Type: 
  Country: None (occurrence: None)
  Receive Date: 20060406
  Receipt Date: 20060223
  Transmission Date: 20061013
  Serious: Yes (Death, Hospitalization)
  Sender: FDA-Public Use
  Company Number: US-MERCK-0602USA05460

PATIENT
  Age: 76 Year
  Sex: Female
  Weight: 55 kg

DRUGS (8)
  1. VIOXX [Suspect]
     Indication: ARTHRITIS
     Route: 048
     Dates: start: 20000101, end: 20040510
  2. LESCOL [Concomitant]
     Route: 065
  3. ACIPHEX [Concomitant]
     Route: 065
  4. ADALAT [Concomitant]
     Route: 065
  5. TRIAZOLAM [Concomitant]
     Route: 065
  6. ACTONEL [Concomitant]
     Route: 065
  7. FOSAMAX [Concomitant]
     Route: 065
  8. DETROL [Concomitant]
     Route: 065

REACTIONS (10)
  - ARTHRALGIA [None]
  - CEREBRAL INFARCTION [None]
  - CEREBROVASCULAR ACCIDENT [None]
  - COUGH [None]
  - DIZZINESS [None]
  - DYSPNOEA [None]
  - LUNG INFILTRATION [None]
  - OSTEOARTHRITIS [None]
  - RADIUS FRACTURE [None]
  - VISUAL DISTURBANCE [None]
